FAERS Safety Report 12718640 (Version 3)
Quarter: 2016Q3

REPORT INFORMATION
  Report Type: Report from Study
  Country: DE (occurrence: DE)
  Receive Date: 20160906
  Receipt Date: 20160926
  Transmission Date: 20161109
  Serious: Yes (Other)
  Sender: FDA-Public Use
  Company Number: DE-GILEAD-2016-0231093

PATIENT
  Age: 74 Year
  Sex: Male
  Weight: 84 kg

DRUGS (7)
  1. COTRIM FORTE [Concomitant]
     Active Substance: SULFAMETHOXAZOLE\TRIMETHOPRIM
     Dosage: 960 MG, QD
     Route: 048
     Dates: start: 20151012
  2. BISOPROLOL [Concomitant]
     Active Substance: BISOPROLOL
     Dosage: 5 MG, QD
     Route: 048
     Dates: start: 20151009
  3. BENDAMUSTINE [Suspect]
     Active Substance: BENDAMUSTINE
     Indication: CHRONIC LYMPHOCYTIC LEUKAEMIA
     Dosage: 140 MG, QD
     Route: 042
     Dates: start: 20150831, end: 20150901
  4. OBINUTUZUMAB [Suspect]
     Active Substance: OBINUTUZUMAB
     Indication: CHRONIC LYMPHOCYTIC LEUKAEMIA
     Dosage: 1000 MG, QD
     Route: 042
     Dates: start: 20151012, end: 20160523
  5. ADENURIC [Concomitant]
     Active Substance: FEBUXOSTAT
     Dosage: 80 MG, QD
     Route: 048
     Dates: start: 20150907
  6. ACICLOVIR [Concomitant]
     Active Substance: ACYCLOVIR
     Dosage: 400 MG, QD
     Route: 048
     Dates: start: 20151012
  7. IDELALISIB [Suspect]
     Active Substance: IDELALISIB
     Indication: CHRONIC LYMPHOCYTIC LEUKAEMIA
     Dosage: 300 MG, QD
     Route: 048
     Dates: start: 20151109, end: 20160322

REACTIONS (1)
  - Basal cell carcinoma [Recovered/Resolved]

NARRATIVE: CASE EVENT DATE: 201606
